FAERS Safety Report 8727876 (Version 4)
Quarter: 2013Q2

REPORT INFORMATION
  Report Type: Spontaneous
  Country: US (occurrence: US)
  Receive Date: 20120816
  Receipt Date: 20130419
  Transmission Date: 20140414
  Serious: Yes (Hospitalization)
  Sender: FDA-Public Use
  Company Number: US-B.I. PHARMACEUTICALS,INC./RIDGEFIELD-2012-BP-18725BP

PATIENT
  Age: 85 Year
  Sex: Female
  Weight: 54.43 kg

DRUGS (9)
  1. PRADAXA [Suspect]
     Indication: ANTICOAGULANT THERAPY
     Dosage: 300 MG
     Route: 048
     Dates: start: 20110415, end: 20110815
  2. PRADAXA [Suspect]
     Indication: ATRIAL FIBRILLATION
  3. CARVEDILOL [Concomitant]
     Dates: start: 2007
  4. FUROSEMIDE [Concomitant]
     Dates: start: 2007
  5. POTASSIUM [Concomitant]
     Dates: start: 2007
  6. CITALOPRAM [Concomitant]
     Dates: start: 2007
  7. DONEPEZIL HCL [Concomitant]
     Dates: start: 2007
  8. TRAVATAN [Concomitant]
     Dates: start: 2007
  9. DORZOLAMIDE [Concomitant]
     Dates: start: 2007

REACTIONS (3)
  - Lower gastrointestinal haemorrhage [Unknown]
  - Haemorrhagic anaemia [Unknown]
  - Contusion [Unknown]
